FAERS Safety Report 9283370 (Version 1)
Quarter: 2013Q2

REPORT INFORMATION
  Report Type: Spontaneous
  Country: US (occurrence: US)
  Receive Date: 20130510
  Receipt Date: 20130510
  Transmission Date: 20140414
  Serious: No
  Sender: FDA-Public Use
  Company Number: US-GLAXOSMITHKLINE-A1002257A

PATIENT
  Age: 58 Year
  Sex: Female

DRUGS (4)
  1. TYKERB [Suspect]
     Indication: BREAST CANCER
     Dosage: 250MG SEE DOSAGE TEXT
     Route: 048
     Dates: start: 20110826
  2. LEVETIRACETAM [Concomitant]
     Dosage: 500MG SEE DOSAGE TEXT
     Route: 048
     Dates: start: 20111219
  3. OXCARBAZEPINE [Concomitant]
     Dosage: 600MG TWICE PER DAY
     Route: 048
     Dates: start: 20111219
  4. DIOVAN [Concomitant]
     Dosage: 250MG PER DAY
     Route: 048
     Dates: start: 20111219

REACTIONS (2)
  - Dizziness [Recovered/Resolved]
  - Balance disorder [Recovered/Resolved]
